FAERS Safety Report 25417308 (Version 1)
Quarter: 2025Q2

REPORT INFORMATION
  Report Type: Spontaneous
  Country: PT (occurrence: PT)
  Receive Date: 20250610
  Receipt Date: 20250610
  Transmission Date: 20250717
  Serious: Yes (Other)
  Sender: STRIDES
  Company Number: None

PATIENT
  Age: 77 Year
  Sex: Male

DRUGS (1)
  1. PREDNISOLONE [Suspect]
     Active Substance: PREDNISOLONE
     Indication: Hypereosinophilic syndrome
     Route: 065

REACTIONS (8)
  - Hypochromic anaemia [Recovered/Resolved]
  - Neutrophilia [Recovered/Resolved]
  - Hypokalaemia [Recovered/Resolved]
  - Hypoalbuminaemia [Recovered/Resolved]
  - Strongyloidiasis [Recovered/Resolved]
  - Enteritis infectious [Recovered/Resolved]
  - Disseminated strongyloidiasis [Recovered/Resolved]
  - Off label use [Unknown]
